FAERS Safety Report 5720347-6 (Version None)
Quarter: 2008Q2

REPORT INFORMATION
  Report Type: 
  Country: None (occurrence: None)
  Receive Date: 20080428
  Receipt Date: 20080416
  Transmission Date: 20081010
  Serious: Yes (Other)
  Sender: FDA-Public Use
  Company Number: GR-PFIZER INC-2008028146

PATIENT
  Age: 48 Year
  Sex: Female
  Weight: 97 kg

DRUGS (9)
  1. CHAMPIX [Suspect]
     Indication: SMOKING CESSATION THERAPY
     Route: 048
     Dates: start: 20080109, end: 20080126
  2. SERETIDE [Concomitant]
     Route: 055
  3. PREZOLON [Concomitant]
     Route: 048
  4. ZANTAC [Concomitant]
  5. SEROXAT ^SMITH KLINE BEECHAM^ [Concomitant]
     Route: 048
  6. XANAX [Concomitant]
     Route: 048
  7. COAPROVEL [Concomitant]
     Dosage: TEXT:150MG/12.5MG-FREQ:0.5 DF EVERY 12 HOURS
     Route: 048
  8. LOPRESSOR [Concomitant]
     Dosage: DAILY DOSE:100MG
     Route: 048
  9. ARAVA [Concomitant]
     Route: 048

REACTIONS (4)
  - ARTHRITIS [None]
  - HAEMATOCRIT DECREASED [None]
  - RED BLOOD CELL SEDIMENTATION RATE INCREASED [None]
  - RESPIRATORY TRACT INFECTION [None]
